FAERS Safety Report 23500081 (Version 1)
Quarter: 2024Q1

REPORT INFORMATION
  Report Type: Spontaneous
  Country: ES (occurrence: ES)
  Receive Date: 20240208
  Receipt Date: 20240208
  Transmission Date: 20240410
  Serious: Yes (Other)
  Sender: FDA-Public Use
  Company Number: None

PATIENT
  Age: 88 Year
  Sex: Male
  Weight: 79 kg

DRUGS (4)
  1. OMEPRAZOLE [Suspect]
     Active Substance: OMEPRAZOLE
     Indication: Product used for unknown indication
     Dosage: 20 MG /24H
     Route: 048
     Dates: start: 20160517
  2. VORICONAZOLE [Suspect]
     Active Substance: VORICONAZOLE
     Indication: Infective exacerbation of bronchiectasis
     Dosage: 200 MG /12H
     Route: 048
     Dates: start: 20231103, end: 20231128
  3. LEVOFLOXACIN [Suspect]
     Active Substance: LEVOFLOXACIN
     Indication: Pneumonia
     Dosage: 500 MG /24H, 500 MG INJECTION INFUSION 100 ML
     Route: 042
     Dates: start: 20231126, end: 20231129
  4. METHYLPREDNISOLONE [Suspect]
     Active Substance: METHYLPREDNISOLONE
     Indication: Bronchospasm
     Dosage: 40 MG INJECTION, 120 MG EVERY 24 HOURS
     Route: 042
     Dates: start: 20231126, end: 20231129

REACTIONS (2)
  - Aggression [Recovering/Resolving]
  - Confusional state [Recovering/Resolving]

NARRATIVE: CASE EVENT DATE: 20231128
